FAERS Safety Report 15707409 (Version 1)
Quarter: 2018Q4

REPORT INFORMATION
  Report Type: Report from Study
  Country: None (occurrence: HU)
  Receive Date: 20181211
  Receipt Date: 20181211
  Transmission Date: 20190205
  Serious: Yes (Other)
  Sender: FDA-Public Use
  Company Number: HU-ABBVIE-18S-076-2584662-00

PATIENT
  Age: 80 Year
  Sex: Male

DRUGS (7)
  1. SOMNOL [Concomitant]
     Active Substance: APOMORPHINE HYDROCHLORIDE\HEXOBARBITAL\NIACIN\PHENOBARBITAL\SCOPOLAMINE HYDROBROMIDE
     Indication: SLEEP DISORDER
     Dosage: 1 TABLET IN THE EVENING
     Route: 048
     Dates: start: 201612
  2. REQUIP [Concomitant]
     Active Substance: ROPINIROLE HYDROCHLORIDE
     Indication: PARKINSON^S DISEASE
     Dosage: 8MG, 4MG, 2X8MG AND 1 TABLET IN THE EVENING
     Route: 048
     Dates: start: 2012
  3. ELIGARD [Concomitant]
     Active Substance: LEUPROLIDE ACETATE
     Indication: PROSTATE CANCER
     Route: 030
     Dates: start: 201606
  4. DUODOPA [Suspect]
     Active Substance: CARBIDOPA\LEVODOPA
     Indication: PARKINSON^S DISEASE
     Dosage: MD 11.0 ML; CD 2.5 ML/H; ED 1.5 ML
     Route: 050
     Dates: start: 20170505
  5. TANYZ ERAS [Concomitant]
     Indication: PROSTATE CANCER
     Route: 048
     Dates: start: 201603
  6. STALEVO [Concomitant]
     Active Substance: CARBIDOPA\ENTACAPONE\LEVODOPA
     Indication: PARKINSON^S DISEASE
     Dosage: 1 TABLET AT NIGHT
     Route: 048
     Dates: start: 2007
  7. MADOPAR [Concomitant]
     Active Substance: BENSERAZIDE HYDROCHLORIDE\LEVODOPA
     Indication: PARKINSON^S DISEASE
     Dosage: 1 TABLET AT NIGHT AS REQUIRED
     Route: 048
     Dates: start: 2007

REACTIONS (2)
  - Vertigo [Not Recovered/Not Resolved]
  - Loss of consciousness [Unknown]

NARRATIVE: CASE EVENT DATE: 201811
